FAERS Safety Report 24964503 (Version 1)
Quarter: 2025Q1

REPORT INFORMATION
  Report Type: Spontaneous
  Country: RU (occurrence: RU)
  Receive Date: 20250213
  Receipt Date: 20250213
  Transmission Date: 20250409
  Serious: Yes (Other)
  Sender: DR REDDYS
  Company Number: RU-RZN-RUS/2025/02/002219

PATIENT
  Age: 53 Year
  Sex: Female

DRUGS (1)
  1. CETIRIZINE HYDROCHLORIDE [Suspect]
     Active Substance: CETIRIZINE HYDROCHLORIDE
     Indication: Dermatitis allergic
     Dosage: SINGLE DOSAGE: 10 MG. DOSAGE: 10 MG. FREQUENCY OF RECEPTION: 1 MIN
     Route: 048
     Dates: start: 20250202, end: 20250202

REACTIONS (1)
  - Angioedema [Recovering/Resolving]

NARRATIVE: CASE EVENT DATE: 20250202
